FAERS Safety Report 6665467-7 (Version None)
Quarter: 2010Q2

REPORT INFORMATION
  Report Type: 
  Country: None (occurrence: None)
  Receive Date: 20100402
  Receipt Date: 20100319
  Transmission Date: 20101027
  Serious: Yes (Death)
  Sender: FDA-Public Use
  Company Number: FR-RB-005121-10

PATIENT
  Sex: Female

DRUGS (2)
  1. SUBUTEX [Suspect]
     Indication: DRUG EXPOSURE DURING PREGNANCY
     Dosage: DOSING DETAILS UNKNOWN
     Route: 064
  2. SUBUTEX [Suspect]
     Indication: DRUG EXPOSURE VIA BREAST MILK
     Dosage: DOSING DETAILS UNKNOWN
     Route: 063

REACTIONS (3)
  - DEATH [None]
  - DRUG EXPOSURE DURING PREGNANCY [None]
  - DRUG EXPOSURE VIA BREAST MILK [None]
